FAERS Safety Report 10676137 (Version 2)
Quarter: 2019Q1

REPORT INFORMATION
  Report Type: Spontaneous
  Country: CA (occurrence: CA)
  Receive Date: 20141226
  Receipt Date: 20190228
  Transmission Date: 20190417
  Serious: Yes (Other)
  Sender: FDA-Public Use
  Company Number: CA-AUROBINDO-AUR-APL-2014-13068

PATIENT

DRUGS (2)
  1. CYCLOBENZAPRINE TABLETS [Suspect]
     Active Substance: CYCLOBENZAPRINE
     Indication: PRODUCT USED FOR UNKNOWN INDICATION
     Dosage: UNK UNK, AS NECESSARY
     Route: 048
  2. HYDROCODONE [Suspect]
     Active Substance: HYDROCODONE
     Indication: PRODUCT USED FOR UNKNOWN INDICATION
     Dosage: UNK UNK, AS NECESSARY
     Route: 048

REACTIONS (11)
  - Rapid eye movements sleep abnormal [Unknown]
  - Sleep study abnormal [Unknown]
  - Somnolence [Unknown]
  - Poor quality sleep [Unknown]
  - Narcolepsy [Unknown]
  - Snoring [Unknown]
  - Fall [Unknown]
  - Cataplexy [None]
  - Sleep paralysis [Unknown]
  - Loss of personal independence in daily activities [Unknown]
  - Heart rate abnormal [Unknown]
